FAERS Safety Report 6410747-3 (Version None)
Quarter: 2009Q4

REPORT INFORMATION
  Report Type: 
  Country: None (occurrence: None)
  Receive Date: 20091020
  Receipt Date: 20091020
  Transmission Date: 20100525
  Serious: Yes (Hospitalization)
  Sender: FDA-Public Use
  Company Number: None

PATIENT
  Age: 78 Year
  Sex: Male
  Weight: 71.6683 kg

DRUGS (4)
  1. IXABEPILONE [Suspect]
     Indication: COLORECTAL CANCER METASTATIC
     Dosage: 71 MG IV CYCLE 1 DAY 1
     Route: 042
     Dates: start: 20091013
  2. SUNITIB [Suspect]
     Dosage: 37.5 ORAL STARTS ON C1D8 NOT GIVEN
     Route: 048
  3. TOPROL-XL [Concomitant]
  4. NORVASC [Concomitant]

REACTIONS (7)
  - ASTHENIA [None]
  - DEHYDRATION [None]
  - DIARRHOEA [None]
  - DRUG TOXICITY [None]
  - DYSPHAGIA [None]
  - PYREXIA [None]
  - VOMITING [None]
